FAERS Safety Report 11120106 (Version 1)
Quarter: 2015Q2

REPORT INFORMATION
  Report Type: Spontaneous
  Country: US (occurrence: US)
  Receive Date: 20150518
  Receipt Date: 20150518
  Transmission Date: 20150821
  Serious: Yes (Hospitalization)
  Sender: FDA-Public Use
  Company Number: US-BAUSCH-BL-2015-013561

PATIENT
  Age: 62 Year
  Sex: Male

DRUGS (1)
  1. XENAZINE [Suspect]
     Active Substance: TETRABENAZINE
     Indication: HUNTINGTON^S DISEASE
     Route: 048
     Dates: start: 20150416

REACTIONS (4)
  - Thrombosis [Unknown]
  - Restlessness [Unknown]
  - Joint injury [Not Recovered/Not Resolved]
  - Aneurysm [Unknown]

NARRATIVE: CASE EVENT DATE: 2015
